FAERS Safety Report 12417197 (Version 1)
Quarter: 2016Q2

REPORT INFORMATION
  Report Type: Spontaneous
  Country: DE (occurrence: DE)
  Receive Date: 20160530
  Receipt Date: 20160530
  Transmission Date: 20160815
  Serious: Yes (Other)
  Sender: FDA-Public Use
  Company Number: DE-JNJFOC-20141115957

PATIENT
  Age: 56 Year
  Sex: Female

DRUGS (1)
  1. SIMPONI [Suspect]
     Active Substance: GOLIMUMAB
     Indication: RHEUMATOID ARTHRITIS
     Dosage: SINCE 4 WEEKS
     Route: 058
     Dates: start: 201410

REACTIONS (3)
  - Rheumatoid arthritis [Unknown]
  - Thrombosis [Unknown]
  - Drug ineffective [Unknown]
